FAERS Safety Report 20370692 (Version 1)
Quarter: 2022Q1

REPORT INFORMATION
  Report Type: Spontaneous
  Country: JP (occurrence: JP)
  Receive Date: 20220124
  Receipt Date: 20220124
  Transmission Date: 20220423
  Serious: Yes (Hospitalization)
  Sender: FDA-Public Use
  Company Number: JP-ELI_LILLY_AND_COMPANY-JP202201005502

PATIENT
  Age: 72 Year
  Sex: Male

DRUGS (4)
  1. OLANZAPINE [Suspect]
     Active Substance: OLANZAPINE
     Indication: Product used for unknown indication
     Dosage: 2.5 MG, DAILY
     Route: 048
  2. OLANZAPINE [Suspect]
     Active Substance: OLANZAPINE
     Dosage: 5 MG, DAILY
     Route: 048
  3. DONEPEZIL HYDROCHLORIDE [Concomitant]
     Active Substance: DONEPEZIL HYDROCHLORIDE
     Indication: Dementia with Lewy bodies
     Dosage: 10 MG, DAILY
  4. QUETIAPINE [Concomitant]
     Active Substance: QUETIAPINE
     Indication: Dementia with Lewy bodies
     Dosage: 100 MG, DAILY

REACTIONS (1)
  - Dementia with Lewy bodies [Recovering/Resolving]
